FAERS Safety Report 7441491-1 (Version None)
Quarter: 2011Q2

REPORT INFORMATION
  Report Type: 
  Country: None (occurrence: None)
  Receive Date: 20110425
  Receipt Date: 20110425
  Transmission Date: 20111010
  Serious: No
  Sender: FDA-Public Use
  Company Number: None

PATIENT
  Age: 2 Year
  Sex: Male
  Weight: 14.5151 kg

DRUGS (2)
  1. FENTANYL [Concomitant]
  2. OFIRMEV [Suspect]
     Indication: PERIOPERATIVE ANALGESIA
     Dosage: 225 MG X1 IV BOLUS
     Route: 040
     Dates: start: 20110407, end: 20110407

REACTIONS (2)
  - LARYNGOSPASM [None]
  - PO2 DECREASED [None]
